FAERS Safety Report 18871445 (Version 1)
Quarter: 2021Q1

REPORT INFORMATION
  Report Type: Spontaneous
  Country: FR (occurrence: FR)
  Receive Date: 20210210
  Receipt Date: 20210210
  Transmission Date: 20210420
  Serious: Yes (Life-Threatening)
  Sender: FDA-Public Use
  Company Number: NVSC2021FR029580

PATIENT
  Age: 15 Year
  Sex: Female
  Weight: 51 kg

DRUGS (1)
  1. PARACETAMOL [Suspect]
     Active Substance: ACETAMINOPHEN
     Indication: SUICIDE ATTEMPT
     Dosage: 12.5 G (TOTAL)
     Route: 048
     Dates: start: 20210105, end: 20210105

REACTIONS (6)
  - Suicide attempt [Recovered/Resolved]
  - Hepatic failure [Recovered/Resolved]
  - Vomiting [Recovered/Resolved]
  - Analgesic drug level increased [Recovered/Resolved]
  - Hepatocellular injury [Recovered/Resolved]
  - Poisoning deliberate [Recovered/Resolved]

NARRATIVE: CASE EVENT DATE: 20210105
